FAERS Safety Report 6225276-X (Version None)
Quarter: 2009Q2

REPORT INFORMATION
  Report Type: 
  Country: None (occurrence: None)
  Receive Date: 20090612
  Receipt Date: 20090409
  Transmission Date: 20091009
  Serious: No
  Sender: FDA-Public Use
  Company Number: US-ABBOTT-09P-163-0567701-00

PATIENT
  Sex: Female

DRUGS (16)
  1. HUMIRA [Suspect]
     Indication: RHEUMATOID ARTHRITIS
     Route: 058
     Dates: start: 20081201, end: 20090401
  2. ARAVA [Concomitant]
     Indication: RHEUMATOID ARTHRITIS
  3. AMIODARONE HCL [Concomitant]
     Indication: ARRHYTHMIA
     Route: 048
  4. COUMADIN [Concomitant]
     Indication: ARRHYTHMIA
     Route: 048
  5. MICARDIS [Concomitant]
     Indication: ARRHYTHMIA
     Route: 048
  6. MICARDIS [Concomitant]
     Indication: HYPERTENSION
  7. ZOCOR [Concomitant]
     Indication: BLOOD CHOLESTEROL INCREASED
     Route: 048
  8. LASIX [Concomitant]
     Indication: HYPERTENSION
     Route: 048
  9. LASIX [Concomitant]
     Indication: FLUID RETENTION
  10. POTASSIUM CHLORIDE [Concomitant]
     Indication: ELECTROLYTE SUBSTITUTION THERAPY
     Route: 048
  11. SYNTHROID [Concomitant]
     Indication: HYPOTHYROIDISM
     Route: 048
  12. ASPIRIN [Concomitant]
     Indication: CARDIOVASCULAR DISORDER
     Route: 048
  13. ASPIRIN [Concomitant]
     Indication: ARRHYTHMIA
  14. FOLIC ACID [Concomitant]
     Indication: VITAMIN SUPPLEMENTATION
     Route: 048
  15. EYE VITAMIN [Concomitant]
     Indication: EYE DISORDER
     Route: 048
  16. PREDNISONE [Concomitant]
     Indication: RHEUMATOID ARTHRITIS
     Route: 048

REACTIONS (3)
  - PRURITUS [None]
  - RASH ERYTHEMATOUS [None]
  - SKIN EXFOLIATION [None]
